FAERS Safety Report 16823369 (Version 1)
Quarter: 2019Q3

REPORT INFORMATION
  Report Type: Spontaneous
  Country: US (occurrence: US)
  Receive Date: 20190918
  Receipt Date: 20190918
  Transmission Date: 20191005
  Serious: No
  Sender: FDA-Public Use
  Company Number: US-IPSEN BIOPHARMACEUTICALS, INC.-2019-16830

PATIENT
  Sex: Female

DRUGS (1)
  1. DYSPORT [Suspect]
     Active Substance: ABOBOTULINUMTOXINA
     Indication: PRODUCT USED FOR UNKNOWN INDICATION
     Dosage: NOT REPORTED
     Route: 065
     Dates: start: 20190626, end: 20190626

REACTIONS (4)
  - Feeling abnormal [Unknown]
  - Muscular weakness [Unknown]
  - Abnormal behaviour [Unknown]
  - Gait inability [Unknown]

NARRATIVE: CASE EVENT DATE: 2019
